FAERS Safety Report 4556792-4 (Version None)
Quarter: 2005Q1

REPORT INFORMATION
  Report Type: 
  Country: None (occurrence: None)
  Receive Date: 20050103
  Receipt Date: 20041008
  Transmission Date: 20050727
  Serious: Yes (Other)
  Sender: FDA-Public Use
  Company Number: 2004UW04565

PATIENT
  Age: 57 Year
  Sex: Male
  Weight: 80.7403 kg

DRUGS (4)
  1. CRESTOR [Suspect]
     Indication: HYPERCHOLESTEROLAEMIA
     Dosage: 10 MG QD PO
     Route: 048
  2. CRESTOR [Suspect]
     Indication: HYPERCHOLESTEROLAEMIA
     Dosage: 10 MG QOD PO
     Route: 048
     Dates: end: 20041001
  3. NIACIN [Concomitant]
  4. NADOLOL [Concomitant]

REACTIONS (3)
  - FLUSHING [None]
  - HYPERHIDROSIS [None]
  - PALPITATIONS [None]
